FAERS Safety Report 13073612 (Version 2)
Quarter: 2017Q1

REPORT INFORMATION
  Report Type: Spontaneous
  Country: JP (occurrence: JP)
  Receive Date: 20161229
  Receipt Date: 20170214
  Transmission Date: 20170428
  Serious: Yes (Other)
  Sender: FDA-Public Use
  Company Number: JP-FSC THERAPEUTICS-2016ECL00093

PATIENT
  Age: 82 Year
  Sex: Female

DRUGS (6)
  1. RABEPRAZOLE SODIUM. [Suspect]
     Active Substance: RABEPRAZOLE SODIUM
     Indication: GASTRIC ULCER
     Dosage: 1 DOSAGE UNITS, 1X/DAY
     Route: 048
     Dates: start: 20160523, end: 2016
  2. RABEPRAZOLE SODIUM. [Suspect]
     Active Substance: RABEPRAZOLE SODIUM
     Indication: GASTROOESOPHAGEAL REFLUX DISEASE
  3. MAGNESIUM OXIDE. [Concomitant]
     Active Substance: MAGNESIUM OXIDE
     Indication: CONSTIPATION
     Dosage: 330 MG (TITER), 3X/DAY
     Route: 048
     Dates: start: 20160606, end: 20160919
  4. PARIET [Suspect]
     Active Substance: RABEPRAZOLE SODIUM
     Indication: GASTROOESOPHAGEAL REFLUX DISEASE
     Dosage: 10 MG, 1X/DAY
     Route: 048
     Dates: start: 2016, end: 20161104
  5. PARIET [Suspect]
     Active Substance: RABEPRAZOLE SODIUM
     Indication: GASTRIC ULCER
  6. JANUVIA [Concomitant]
     Active Substance: SITAGLIPTIN PHOSPHATE
     Indication: DIABETES MELLITUS
     Dosage: 50 MG, 1X/DAY
     Route: 048
     Dates: start: 20160606, end: 20160919

REACTIONS (5)
  - Cerebral infarction [None]
  - Hallucination, auditory [Recovered/Resolved]
  - Cerebral atrophy [Unknown]
  - Delusion [Recovered/Resolved]
  - Meningioma [Unknown]

NARRATIVE: CASE EVENT DATE: 201608
